FAERS Safety Report 16139497 (Version 1)
Quarter: 2019Q2

REPORT INFORMATION
  Report Type: Spontaneous
  Country: US (occurrence: US)
  Receive Date: 20190401
  Receipt Date: 20190401
  Transmission Date: 20190711
  Serious: No
  Sender: FDA-Public Use
  Company Number: PHHY2019US072141

PATIENT
  Age: 79 Year
  Sex: Female

DRUGS (1)
  1. SYSTANE ULTRA [Suspect]
     Active Substance: POLYETHYLENE GLYCOL 400\PROPYLENE GLYCOL
     Indication: PRODUCT USED FOR UNKNOWN INDICATION
     Route: 047

REACTIONS (7)
  - Feeling abnormal [Unknown]
  - Dry mouth [Unknown]
  - Visual impairment [Unknown]
  - Back pain [Unknown]
  - Product quality issue [Unknown]
  - Tremor [Unknown]
  - Abdominal pain upper [Unknown]
